FAERS Safety Report 21089567 (Version 1)
Quarter: 2022Q3

REPORT INFORMATION
  Report Type: Spontaneous
  Country: TW (occurrence: TW)
  Receive Date: 20220715
  Receipt Date: 20220715
  Transmission Date: 20221027
  Serious: Yes (Hospitalization)
  Sender: FDA-Public Use
  Company Number: TW-PURDUE PHARMA-USA-2022-0295185

PATIENT
  Age: 2 Day
  Sex: Female

DRUGS (1)
  1. LIDOCAINE [Suspect]
     Active Substance: LIDOCAINE
     Indication: Long QT syndrome
     Dosage: UNK
     Route: 065

REACTIONS (3)
  - Ejection fraction decreased [Recovered/Resolved]
  - Dyskinesia [Unknown]
  - Somnolence [Recovered/Resolved]
